FAERS Safety Report 11171719 (Version 1)
Quarter: 2015Q2

REPORT INFORMATION
  Report Type: Spontaneous
  Country: US (occurrence: None)
  Receive Date: 20150515
  Receipt Date: 20150515
  Transmission Date: 20150821
  Serious: Yes (Other)
  Sender: FDA-Public Use
  Company Number: 2015007150

PATIENT
  Sex: Female

DRUGS (1)
  1. CIMZIA [Suspect]
     Active Substance: CERTOLIZUMAB PEGOL
     Route: 058

REACTIONS (14)
  - Diarrhoea haemorrhagic [None]
  - Rash [None]
  - Injection site bruising [None]
  - Arthralgia [None]
  - Oedema peripheral [None]
  - Visual impairment [None]
  - Weight increased [None]
  - Disorientation [None]
  - Depressed level of consciousness [None]
  - Headache [None]
  - Alopecia [None]
  - Diarrhoea [None]
  - Neck pain [None]
  - Injection site urticaria [None]

NARRATIVE: CASE EVENT DATE: 2013
